FAERS Safety Report 7796174-5 (Version None)
Quarter: 2011Q4

REPORT INFORMATION
  Report Type: 
  Country: None (occurrence: None)
  Receive Date: 20111004
  Receipt Date: 20110920
  Transmission Date: 20120403
  Serious: Yes (Other)
  Sender: FDA-Public Use
  Company Number: IT-BAYER-2011-089025

PATIENT
  Age: 77 Year
  Sex: Female

DRUGS (1)
  1. ACETYLSALICYLIC ACID SRT [Suspect]
     Dosage: DAILY DOSE 100 MG
     Route: 048
     Dates: start: 20100710, end: 20110709

REACTIONS (1)
  - ULCER HAEMORRHAGE [None]
